FAERS Safety Report 20081450 (Version 1)
Quarter: 2021Q4

REPORT INFORMATION
  Report Type: Spontaneous
  Country: US (occurrence: US)
  Receive Date: 20211117
  Receipt Date: 20211117
  Transmission Date: 20220303
  Serious: Yes (Other)
  Sender: FDA-Public Use
  Company Number: US-BAYER-2021A245731

PATIENT
  Age: 32 Year
  Sex: Female

DRUGS (1)
  1. ASPIRIN [Suspect]
     Active Substance: ASPIRIN
     Indication: COVID-19 treatment
     Dosage: UNK

REACTIONS (3)
  - Foetal growth restriction [Not Recovered/Not Resolved]
  - Off label use [None]
  - Maternal exposure during pregnancy [None]
